FAERS Safety Report 7627605-9 (Version None)
Quarter: 2011Q3

REPORT INFORMATION
  Report Type: 
  Country: None (occurrence: None)
  Receive Date: 20110721
  Receipt Date: 20110714
  Transmission Date: 20111222
  Serious: Yes (Other)
  Sender: FDA-Public Use
  Company Number: JP-SANOFI-AVENTIS-2011SA045571

PATIENT
  Sex: Female

DRUGS (2)
  1. GASCON [Concomitant]
     Route: 048
  2. ALLEGRA [Suspect]
     Route: 048
     Dates: start: 20110601

REACTIONS (1)
  - PLATELET COUNT DECREASED [None]
